FAERS Safety Report 9520739 (Version 1)
Quarter: 2013Q3

REPORT INFORMATION
  Report Type: Spontaneous
  Country: US (occurrence: None)
  Receive Date: 20130911
  Receipt Date: 20130911
  Transmission Date: 20140515
  Serious: Yes (Other)
  Sender: FDA-Public Use
  Company Number: None

PATIENT
  Age: 43 Year
  Sex: Female
  Weight: 136.08 kg

DRUGS (1)
  1. INVOKANA [Suspect]
     Indication: DIABETES MELLITUS
     Dosage: INVOKANA DAILY ORAL
     Route: 048
     Dates: start: 20130809, end: 20130826

REACTIONS (4)
  - Confusional state [None]
  - Amnesia [None]
  - Hypoaesthesia [None]
  - Nervous system disorder [None]
